FAERS Safety Report 5084928-8 (Version None)
Quarter: 2006Q3

REPORT INFORMATION
  Report Type: 
  Country: None (occurrence: None)
  Receive Date: 20060815
  Receipt Date: 20060731
  Transmission Date: 20061208
  Serious: Yes (Hospitalization)
  Sender: FDA-Public Use
  Company Number: M-06-0617

PATIENT
  Age: 71 Year
  Sex: Female

DRUGS (13)
  1. PACERONE [Suspect]
     Indication: ATRIAL FIBRILLATION
     Dosage: 200 MG QD PO
     Route: 048
     Dates: start: 20040101
  2. PLAVIX [Concomitant]
  3. HYDROCHLOROTHIAZIDE [Concomitant]
  4. LEVSIN [Concomitant]
  5. SYNTHROID [Concomitant]
  6. XANAX [Concomitant]
  7. K-DUR 10 [Concomitant]
  8. VYTORIN [Concomitant]
  9. LASIX [Concomitant]
  10. ASPIRIN [Concomitant]
  11. IRON SUPPLEMENT [Concomitant]
  12. NITROGLYCERIN [Concomitant]
  13. UNSPECIFIED PAIN MEDICATIONS [Concomitant]

REACTIONS (8)
  - DIZZINESS [None]
  - DYSPNOEA [None]
  - EYE IRRITATION [None]
  - EYE SWELLING [None]
  - OCULAR HYPERAEMIA [None]
  - PALPITATIONS [None]
  - RESTLESS LEGS SYNDROME [None]
  - STRESS [None]
